FAERS Safety Report 25959063 (Version 1)
Quarter: 2025Q4

REPORT INFORMATION
  Report Type: Report from Study
  Country: GB (occurrence: GB)
  Receive Date: 20251025
  Receipt Date: 20251025
  Transmission Date: 20260117
  Serious: Yes (Hospitalization, Other)
  Sender: ABBVIE
  Company Number: GB-ABBVIE-6517629

PATIENT
  Sex: Female

DRUGS (1)
  1. SKYRIZI [Suspect]
     Active Substance: RISANKIZUMAB-RZAA
     Indication: Psoriasis
     Dosage: 150MG/1ML, DOSE FORM: SOLUTION FOR INJECTION IN PRE-FILLED PEN?1 PRE-FILLED DISPOSABLE INJECTION
     Route: 058

REACTIONS (2)
  - Cerebral haemorrhage [Unknown]
  - Product quality issue [Unknown]
